FAERS Safety Report 22138044 (Version 1)
Quarter: 2023Q1

REPORT INFORMATION
  Report Type: Report from Study
  Country: EG (occurrence: EG)
  Receive Date: 20230325
  Receipt Date: 20230325
  Transmission Date: 20230417
  Serious: Yes (Other)
  Sender: FDA-Public Use
  Company Number: EG-002147023-NVSC2023EG068480

PATIENT
  Age: 62 Year
  Sex: Female

DRUGS (7)
  1. FEMARA [Suspect]
     Active Substance: LETROZOLE
     Indication: Breast cancer
     Dosage: 1 UNK, QD, (ONE TABLET PER DAY)
     Route: 065
     Dates: start: 202104, end: 202211
  2. CONVENTIN [Concomitant]
     Indication: Sciatica
     Dosage: 1 UNK, Q12H
     Route: 065
     Dates: start: 202107
  3. MYOFEN [Concomitant]
     Indication: Muscle relaxant therapy
     Dosage: 2 UNK, QD
     Route: 065
     Dates: start: 202107
  4. MYOFEN [Concomitant]
     Indication: Analgesic therapy
  5. FASLODEX [Concomitant]
     Active Substance: FULVESTRANT
     Indication: Product used for unknown indication
     Route: 065
  6. CALCIUM [Concomitant]
     Active Substance: CALCIUM
     Indication: Product used for unknown indication
     Route: 065
  7. VITAMIN D NOS [Concomitant]
     Active Substance: VITAMIN D NOS
     Indication: Product used for unknown indication
     Route: 065

REACTIONS (2)
  - Metastases to bone [Recovering/Resolving]
  - Tumour marker increased [Recovering/Resolving]

NARRATIVE: CASE EVENT DATE: 20221001
